FAERS Safety Report 8185004-8 (Version None)
Quarter: 2012Q1

REPORT INFORMATION
  Report Type: 
  Country: None (occurrence: None)
  Receive Date: 20120208
  Receipt Date: 20111115
  Transmission Date: 20120608
  Serious: Yes (Other)
  Sender: FDA-Public Use
  Company Number: AUR-APL-2011-05843

PATIENT
  Age: 33 Year
  Sex: Female
  Weight: 63.49 kg

DRUGS (1)
  1. VENLAFAXINE [Suspect]
     Indication: ANXIETY
     Dosage: UNKNOWN
     Dates: start: 20110101

REACTIONS (1)
  - HYPERSENSITIVITY [None]
